FAERS Safety Report 22024062 (Version 1)
Quarter: 2023Q1

REPORT INFORMATION
  Report Type: Spontaneous
  Country: US (occurrence: None)
  Receive Date: 20230223
  Receipt Date: 20230223
  Transmission Date: 20230418
  Serious: No
  Sender: FDA-Public Use
  Company Number: US-ROCHE-3009050

PATIENT
  Age: 50 Year
  Sex: Female
  Weight: 54.480 kg

DRUGS (2)
  1. XOLAIR [Suspect]
     Active Substance: OMALIZUMAB
     Indication: Urticaria
     Dosage: SHOT IN EACH ARM ;ONGOING: YES
     Route: 065
     Dates: start: 202112
  2. CYCLOSPORINE [Concomitant]
     Active Substance: CYCLOSPORINE

REACTIONS (2)
  - Back pain [Not Recovered/Not Resolved]
  - Maternal exposure during pregnancy [Unknown]

NARRATIVE: CASE EVENT DATE: 20220117
